FAERS Safety Report 12626072 (Version 2)
Quarter: 2017Q1

REPORT INFORMATION
  Report Type: Spontaneous
  Country: DE (occurrence: DE)
  Receive Date: 20160805
  Receipt Date: 20170103
  Transmission Date: 20170428
  Serious: Yes (Hospitalization)
  Sender: FDA-Public Use
  Company Number: DE-TEVA-682364GER

PATIENT
  Age: 76 Year
  Sex: Male
  Weight: 70 kg

DRUGS (5)
  1. ALLOPURINOL. [Concomitant]
     Active Substance: ALLOPURINOL
  2. SIMVABETA [Concomitant]
     Active Substance: SIMVASTATIN
  3. LERCANIDIPIN [Concomitant]
     Active Substance: LERCANIDIPINE
  4. RAMIPRIL. [Concomitant]
     Active Substance: RAMIPRIL
  5. DOXEPIN-RATIOPHARM FILMTABLETTEN [Suspect]
     Active Substance: DOXEPIN
     Indication: SLEEP DISORDER
     Dosage: 75 MILLIGRAM DAILY;
     Route: 048
     Dates: start: 201310, end: 201607

REACTIONS (10)
  - Apathy [Not Recovered/Not Resolved]
  - Asthenia [Not Recovered/Not Resolved]
  - Anxiety [Not Recovered/Not Resolved]
  - Aphasia [Not Recovered/Not Resolved]
  - Delirium [Not Recovered/Not Resolved]
  - Dizziness [Not Recovered/Not Resolved]
  - Fatigue [Not Recovered/Not Resolved]
  - Somnolence [Not Recovered/Not Resolved]
  - Disorientation [Not Recovered/Not Resolved]
  - Hallucination [Not Recovered/Not Resolved]

NARRATIVE: CASE EVENT DATE: 20160720
